FAERS Safety Report 7913375-3 (Version None)
Quarter: 2011Q4

REPORT INFORMATION
  Report Type: 
  Country: None (occurrence: None)
  Receive Date: 20111114
  Receipt Date: 20111104
  Transmission Date: 20120403
  Serious: Yes (Hospitalization, Other)
  Sender: FDA-Public Use
  Company Number: FR-BRISTOL-MYERS SQUIBB COMPANY-16217028

PATIENT
  Age: 70 Year
  Sex: Male

DRUGS (1)
  1. IPILIMUMAB [Suspect]
     Indication: METASTATIC MALIGNANT MELANOMA
     Dosage: THERAPY DATES:07-JUN-2011, 28-JUN-2011, 19-JUL-2011 AND 09-AUG-2011
     Route: 042
     Dates: start: 20110607, end: 20110809

REACTIONS (2)
  - ADRENAL INSUFFICIENCY [None]
  - ACTINIC KERATOSIS [None]
